FAERS Safety Report 9917482 (Version 1)
Quarter: 2014Q1

REPORT INFORMATION
  Report Type: Spontaneous
  Country: US (occurrence: US)
  Receive Date: 20140221
  Receipt Date: 20140221
  Transmission Date: 20141002
  Serious: No
  Sender: FDA-Public Use
  Company Number: US-PFIZER INC-2014050327

PATIENT
  Age: 54 Year
  Sex: Female
  Weight: 58.96 kg

DRUGS (6)
  1. CHANTIX [Suspect]
     Indication: SMOKING CESSATION THERAPY
     Dosage: 0.5 MG, 1X/DAY
     Route: 048
     Dates: start: 20140201, end: 201402
  2. CHANTIX [Suspect]
     Dosage: 1 MG, 2X/DAY
     Route: 048
     Dates: start: 201402, end: 20140209
  3. CHANTIX [Suspect]
     Dosage: 1 MG, 1X/DAY
     Route: 048
     Dates: start: 20140209, end: 20140211
  4. MS CONTIN [Concomitant]
     Indication: PAIN
     Dosage: 30 MG, UNK
  5. OXYCODONE [Concomitant]
     Dosage: UNK
  6. SOMA [Concomitant]
     Indication: MUSCLE RELAXANT THERAPY
     Dosage: UNK

REACTIONS (2)
  - Toothache [Unknown]
  - Pain [Unknown]
